FAERS Safety Report 5293775-3 (Version None)
Quarter: 2007Q2

REPORT INFORMATION
  Report Type: 
  Country: None (occurrence: None)
  Receive Date: 20070405
  Receipt Date: 20070324
  Transmission Date: 20071010
  Serious: Yes (Other)
  Sender: FDA-Public Use
  Company Number: VNL_0494_2007

PATIENT
  Sex: Female

DRUGS (1)
  1. APOMORPHINE [Suspect]
     Dosage: DF CON SC
     Route: 058

REACTIONS (2)
  - PARANOIA [None]
  - SUICIDE ATTEMPT [None]
